FAERS Safety Report 7003683-5 (Version None)
Quarter: 2010Q3

REPORT INFORMATION
  Report Type: 
  Country: None (occurrence: None)
  Receive Date: 20100917
  Receipt Date: 20100909
  Transmission Date: 20110219
  Serious: Yes (Hospitalization)
  Sender: FDA-Public Use
  Company Number: TPA2010A04854

PATIENT
  Age: 51 Year
  Sex: Female
  Weight: 95.0286 kg

DRUGS (8)
  1. PIOGLITAZONE HCL [Suspect]
     Indication: CARDIOVASCULAR EVENT PROPHYLAXIS
     Dosage: 15 MG, 1 IN 1 D, PER ORAL,  30 MG, 1 IN 1 D, PER ORAL, 45 MG, 1 IN 1 D, PER ORAL
     Route: 048
     Dates: start: 20070409, end: 20070507
  2. PIOGLITAZONE HCL [Suspect]
     Indication: CARDIOVASCULAR EVENT PROPHYLAXIS
     Dosage: 15 MG, 1 IN 1 D, PER ORAL,  30 MG, 1 IN 1 D, PER ORAL, 45 MG, 1 IN 1 D, PER ORAL
     Route: 048
     Dates: start: 20070508, end: 20070606
  3. PIOGLITAZONE HCL [Suspect]
     Indication: CARDIOVASCULAR EVENT PROPHYLAXIS
     Dosage: 15 MG, 1 IN 1 D, PER ORAL,  30 MG, 1 IN 1 D, PER ORAL, 45 MG, 1 IN 1 D, PER ORAL
     Route: 048
     Dates: start: 20070607, end: 20100413
  4. FUROSEMIDE [Concomitant]
  5. LIPITOR [Concomitant]
  6. METOPROLOL SUCCINATE [Concomitant]
  7. LISINOPRIL [Concomitant]
  8. ASPIRIN [Concomitant]

REACTIONS (14)
  - ANGINA UNSTABLE [None]
  - BACTERIAL TEST POSITIVE [None]
  - BLOOD ALKALINE PHOSPHATASE NORMAL [None]
  - BLOOD PRESSURE INCREASED [None]
  - BRONCHITIS [None]
  - CARDIAC FAILURE CONGESTIVE [None]
  - DIZZINESS [None]
  - ELECTROCARDIOGRAM ST-T CHANGE [None]
  - HAEMOPTYSIS [None]
  - HYPERTHYROIDISM [None]
  - LYMPHADENOPATHY [None]
  - MEDIASTINAL MASS [None]
  - SINUS TACHYCARDIA [None]
  - TROPONIN INCREASED [None]
